FAERS Safety Report 7235530-0 (Version None)
Quarter: 2011Q1

REPORT INFORMATION
  Report Type: 
  Country: None (occurrence: None)
  Receive Date: 20110120
  Receipt Date: 20110110
  Transmission Date: 20110831
  Serious: Yes (Hospitalization)
  Sender: FDA-Public Use
  Company Number: PHHY2011BE02399

PATIENT
  Age: 70 Year
  Sex: Female

DRUGS (2)
  1. AFINITOR [Suspect]
     Indication: RENAL CELL CARCINOMA
     Dosage: 10 MG, UNK
     Route: 048
     Dates: start: 20100805
  2. AFINITOR [Suspect]
     Dosage: 5 MG, DAILY
     Route: 048

REACTIONS (2)
  - PNEUMONIA [None]
  - PULMONARY EMBOLISM [None]
